FAERS Safety Report 10101548 (Version 1)
Quarter: 2014Q2

REPORT INFORMATION
  Report Type: Spontaneous
  Country: US (occurrence: US)
  Receive Date: 20140424
  Receipt Date: 20140424
  Transmission Date: 20141212
  Serious: Yes (Other)
  Sender: FDA-Public Use
  Company Number: US-BAYER-2014-057372

PATIENT
  Age: 26 Year
  Sex: Male

DRUGS (1)
  1. ALEVE CAPLET [Suspect]
     Indication: BACK PAIN
     Route: 048

REACTIONS (3)
  - Foreign body aspiration [Not Recovered/Not Resolved]
  - Cough [Not Recovered/Not Resolved]
  - Foreign body [None]
